FAERS Safety Report 19426403 (Version 3)
Quarter: 2021Q2

REPORT INFORMATION
  Report Type: Spontaneous
  Country: BR (occurrence: BR)
  Receive Date: 20210616
  Receipt Date: 20210625
  Transmission Date: 20210717
  Serious: Yes (Hospitalization, Other)
  Sender: FDA-Public Use
  Company Number: BR-TAKEDA-2021TUS037736

PATIENT
  Age: 71 Year
  Sex: Female
  Weight: 72 kg

DRUGS (4)
  1. VITAMIN D [Concomitant]
     Active Substance: VITAMIN D NOS
     Dosage: UNK
     Route: 065
  2. ROSUVASTATIN. [Concomitant]
     Active Substance: ROSUVASTATIN
     Dosage: UNK
     Route: 065
  3. MESACOL MMX [Suspect]
     Active Substance: MESALAMINE
     Indication: DIVERTICULITIS
     Dosage: 1200 MILLIGRAM, QD
     Route: 048
     Dates: start: 202009
  4. PURAN [Concomitant]
     Active Substance: LEVOTHYROXINE SODIUM
     Dosage: 62.5 MICROGRAM, QD
     Route: 065

REACTIONS (6)
  - Pulmonary embolism [Unknown]
  - Dyspnoea [Recovered/Resolved]
  - Off label use [Unknown]
  - Arrhythmia [Recovered/Resolved]
  - Adverse event [Unknown]
  - Hypothyroidism [Unknown]

NARRATIVE: CASE EVENT DATE: 20200918
